FAERS Safety Report 7294143-5 (Version None)
Quarter: 2011Q1

REPORT INFORMATION
  Report Type: 
  Country: None (occurrence: None)
  Receive Date: 20110215
  Receipt Date: 20110210
  Transmission Date: 20110831
  Serious: Yes (Other)
  Sender: FDA-Public Use
  Company Number: FR-TEVA-266750USA

PATIENT
  Age: 47 Year
  Sex: Female

DRUGS (1)
  1. PIMOZIDE TABLETS [Suspect]
     Indication: SCHIZOPHRENIA

REACTIONS (1)
  - HEPATIC ENZYME INCREASED [None]
